FAERS Safety Report 9741311 (Version 1)
Quarter: 2013Q4

REPORT INFORMATION
  Report Type: Spontaneous
  Country: GB (occurrence: GB)
  Receive Date: 20131209
  Receipt Date: 20131209
  Transmission Date: 20140711
  Serious: Yes (Other)
  Sender: FDA-Public Use
  Company Number: GB-TEVA-449011ISR

PATIENT
  Age: 51 Year
  Sex: Female

DRUGS (1)
  1. DICLOFENAC [Suspect]
     Indication: BACK PAIN
     Dosage: 150 MILLIGRAM DAILY; CONTROLLED RELEASE
     Route: 065

REACTIONS (3)
  - Gastrointestinal disorder [Recovered/Resolved]
  - Gastric ulcer [Recovered/Resolved]
  - Large intestinal ulcer [Recovered/Resolved]
